FAERS Safety Report 9891855 (Version 3)
Quarter: 2014Q2

REPORT INFORMATION
  Report Type: Spontaneous
  Country: US (occurrence: US)
  Receive Date: 20140212
  Receipt Date: 20140609
  Transmission Date: 20141212
  Serious: Yes (Hospitalization)
  Sender: FDA-Public Use
  Company Number: US-BAYER-2014-021340

PATIENT
  Age: 41 Year
  Sex: Female
  Weight: 45.35 kg

DRUGS (5)
  1. MIRENA [Suspect]
     Indication: CONTRACEPTION
     Dosage: 20 MCG/24HR, CONT
     Route: 015
     Dates: start: 200703, end: 20140425
  2. VERAPAMIL [Concomitant]
     Dosage: 300 MG, UNK
  3. KLONOPIN [Concomitant]
  4. ENALAPRIL [Concomitant]
  5. FLEXERIL [Concomitant]

REACTIONS (8)
  - Uterine perforation [None]
  - Device difficult to use [None]
  - Device dislocation [None]
  - Injury [None]
  - Pain [None]
  - Emotional distress [None]
  - Device issue [None]
  - Device misuse [None]
